FAERS Safety Report 10160654 (Version 3)
Quarter: 2014Q4

REPORT INFORMATION
  Report Type: Spontaneous
  Country: AU (occurrence: AU)
  Receive Date: 20140508
  Receipt Date: 20141205
  Transmission Date: 20150528
  Serious: Yes (Hospitalization)
  Sender: FDA-Public Use
  Company Number: AU-ABBVIE-14P-008-1232007-00

PATIENT
  Age: 60 Year
  Sex: Male
  Weight: 66.2 kg

DRUGS (2)
  1. COVERSYL [Suspect]
     Active Substance: PERINDOPRIL
     Indication: PRODUCT USED FOR UNKNOWN INDICATION
     Route: 065
  2. HUMIRA [Suspect]
     Active Substance: ADALIMUMAB
     Indication: PSORIASIS
     Route: 065
     Dates: start: 20091115, end: 20110415

REACTIONS (5)
  - Acute kidney injury [Not Recovered/Not Resolved]
  - Glomerulosclerosis [Unknown]
  - IgA nephropathy [Not Recovered/Not Resolved]
  - Mesangioproliferative glomerulonephritis [Not Recovered/Not Resolved]
  - Renal arteriosclerosis [Unknown]

NARRATIVE: CASE EVENT DATE: 201104
